FAERS Safety Report 5760354-0 (Version None)
Quarter: 2008Q2

REPORT INFORMATION
  Report Type: 
  Country: None (occurrence: None)
  Receive Date: 20080605
  Receipt Date: 20080530
  Transmission Date: 20081010
  Serious: Yes (Hospitalization)
  Sender: FDA-Public Use
  Company Number: GB-MERCK-0803GBR00038

PATIENT
  Age: 49 Year
  Sex: Male

DRUGS (3)
  1. ZOCOR [Suspect]
     Route: 048
     Dates: start: 20080129, end: 20080220
  2. DIHYDROCODEINE [Concomitant]
     Route: 065
  3. LANSOPRAZOLE [Concomitant]
     Route: 065

REACTIONS (3)
  - CHOLELITHIASIS [None]
  - CHROMATURIA [None]
  - JAUNDICE [None]
